FAERS Safety Report 14734392 (Version 3)
Quarter: 2018Q2

REPORT INFORMATION
  Report Type: Spontaneous
  Country: IT (occurrence: IT)
  Receive Date: 20180409
  Receipt Date: 20180504
  Transmission Date: 20180711
  Serious: Yes (Other)
  Sender: FDA-Public Use
  Company Number: IT-009507513-1803ITA012331

PATIENT
  Age: 11 Year

DRUGS (1)
  1. NOXAFIL [Suspect]
     Active Substance: POSACONAZOLE
     Dosage: UNK
     Dates: start: 2016

REACTIONS (2)
  - Bronchopulmonary aspergillosis [Unknown]
  - Drug ineffective [Unknown]
